FAERS Safety Report 10009453 (Version 3)
Quarter: 2021Q4

REPORT INFORMATION
  Report Type: Spontaneous
  Country: US (occurrence: US)
  Receive Date: 20140313
  Receipt Date: 20211020
  Transmission Date: 20220303
  Serious: Yes (Death, Other)
  Sender: FDA-Public Use
  Company Number: US-INCYTE CORPORATION-2012IN001271

PATIENT

DRUGS (4)
  1. JAKAFI [Suspect]
     Active Substance: RUXOLITINIB
     Indication: Myelofibrosis
     Dosage: 30 MG EVERY MORNING AND 15 MG EVERY NIGHT BEFORE SLEEP
     Route: 048
     Dates: start: 20120217
  2. JAKAFI [Suspect]
     Active Substance: RUXOLITINIB
     Dosage: UNK
     Route: 065
     Dates: end: 201907
  3. ASPIRIN [Concomitant]
     Active Substance: ASPIRIN
     Indication: Product used for unknown indication
     Route: 065
  4. PROPRANOLOL [Concomitant]
     Active Substance: PROPRANOLOL HYDROCHLORIDE
     Indication: Product used for unknown indication
     Route: 065

REACTIONS (17)
  - Death [Fatal]
  - Erythropoiesis abnormal [Unknown]
  - Hepatic failure [Unknown]
  - Haemoglobin decreased [Unknown]
  - Oedema peripheral [Unknown]
  - Asthenia [Unknown]
  - Therapeutic response decreased [Unknown]
  - Splenomegaly [Unknown]
  - Fall [Unknown]
  - General physical health deterioration [Unknown]
  - Illness [Unknown]
  - Anxiety [Unknown]
  - Decreased activity [Unknown]
  - Pain [Unknown]
  - Platelet count decreased [Unknown]
  - Increased tendency to bruise [Unknown]
  - Contusion [Unknown]

NARRATIVE: CASE EVENT DATE: 20120101
